FAERS Safety Report 10774887 (Version 1)
Quarter: 2015Q1

REPORT INFORMATION
  Report Type: Spontaneous
  Country: US (occurrence: None)
  Receive Date: 20150206
  Receipt Date: 20150206
  Transmission Date: 20150721
  Serious: Yes (Hospitalization)
  Sender: FDA-Public Use
  Company Number: HYP201403-000021

PATIENT
  Age: 16 Year
  Sex: Male
  Weight: 49.1 kg

DRUGS (2)
  1. CITRULLINE [Concomitant]
     Active Substance: CITRULLINE
  2. RAVICTI [Suspect]
     Active Substance: GLYCEROL PHENYLBUTYRATE
     Indication: UREA CYCLE ENZYME DEFICIENCY
     Route: 048
     Dates: start: 201310

REACTIONS (11)
  - Rhinorrhoea [None]
  - Mental status changes [None]
  - Abdominal pain [None]
  - Bone pain [None]
  - Hyperammonaemic crisis [None]
  - Vomiting [None]
  - Somnolence [None]
  - Pyrexia [None]
  - Decreased appetite [None]
  - Fatigue [None]
  - Nasal congestion [None]

NARRATIVE: CASE EVENT DATE: 20140303
